FAERS Safety Report 4757272-3 (Version None)
Quarter: 2005Q3

REPORT INFORMATION
  Report Type: 
  Country: None (occurrence: None)
  Receive Date: 20050826
  Receipt Date: 20050812
  Transmission Date: 20060218
  Serious: No
  Sender: FDA-Public Use
  Company Number: DSA_26808_2005

PATIENT
  Age: 17 Year
  Sex: Female

DRUGS (4)
  1. LORAZEPAM [Suspect]
     Dosage: VAR ONCE PO
     Route: 048
     Dates: start: 20050725, end: 20050725
  2. CHITOSANO [Suspect]
     Dosage: 8000 MG ONCE PO
     Route: 048
     Dates: start: 20050725, end: 20050725
  3. ANORECTIC [Suspect]
     Dosage: VAR ONCE PO
     Route: 048
     Dates: start: 20050725, end: 20050725
  4. UNSPECIFEID DRUG [Suspect]
     Dosage: 8 TAB ONCE PO
     Route: 048
     Dates: start: 20050725, end: 20050725

REACTIONS (3)
  - FATIGUE [None]
  - INTENTIONAL MISUSE [None]
  - MULTIPLE DRUG OVERDOSE [None]
